FAERS Safety Report 4708196-9 (Version None)
Quarter: 2005Q2

REPORT INFORMATION
  Report Type: 
  Country: None (occurrence: None)
  Receive Date: 20050629
  Receipt Date: 20050513
  Transmission Date: 20051028
  Serious: No
  Sender: FDA-Public Use
  Company Number: 05P-163-0300489

PATIENT
  Sex: Female
  Weight: 74.8435 kg

DRUGS (9)
  1. HUMIRA [Suspect]
     Indication: RHEUMATOID ARTHRITIS
     Dosage: 40 MG, 1 IN 2 WK, SUBCUTANEOUS
     Route: 058
     Dates: start: 20040601
  2. ISOSORBIDE [Concomitant]
  3. IRBESARTAN [Concomitant]
  4. CLOPIDOGREL BISULFATE [Concomitant]
  5. METOPROLOL SUCCINATE [Concomitant]
  6. NIFEDIPINE [Concomitant]
  7. RALOXIFENE HCL [Concomitant]
  8. AZATHIOPRINE [Concomitant]
  9. PREDNISONE [Concomitant]

REACTIONS (2)
  - CATARACT [None]
  - CONDITION AGGRAVATED [None]
